FAERS Safety Report 12879640 (Version 1)
Quarter: 2016Q4

REPORT INFORMATION
  Report Type: Other
  Country: TW (occurrence: TW)
  Receive Date: 20161025
  Receipt Date: 20161025
  Transmission Date: 20170207
  Serious: Yes (Other)
  Sender: FDA-Public Use
  Company Number: TW-LUPIN PHARMACEUTICALS INC.-2016-01609

PATIENT
  Age: 5 Month
  Sex: Female

DRUGS (8)
  1. CEFTAZIDIME. [Suspect]
     Active Substance: CEFTAZIDIME
     Indication: MENINGITIS
  2. CEFTRIAXONE. [Suspect]
     Active Substance: CEFTRIAXONE
     Indication: MENINGITIS
  3. AMIKACIN [Suspect]
     Active Substance: AMIKACIN
     Indication: KLEBSIELLA SEPSIS
     Route: 065
  4. MEROPENEM. [Suspect]
     Active Substance: MEROPENEM
     Indication: KLEBSIELLA SEPSIS
     Route: 065
  5. CEFTRIAXONE. [Suspect]
     Active Substance: CEFTRIAXONE
     Indication: KLEBSIELLA SEPSIS
     Route: 065
  6. CEFTAZIDIME. [Suspect]
     Active Substance: CEFTAZIDIME
     Indication: KLEBSIELLA SEPSIS
     Route: 065
  7. AMIKACIN [Suspect]
     Active Substance: AMIKACIN
     Indication: MENINGITIS
  8. MEROPENEM. [Suspect]
     Active Substance: MEROPENEM
     Indication: MENINGITIS

REACTIONS (5)
  - Acute kidney injury [None]
  - Disseminated intravascular coagulation [None]
  - Arrhythmia [None]
  - Treatment failure [Unknown]
  - Acute respiratory failure [None]
